FAERS Safety Report 4822516-6 (Version None)
Quarter: 2005Q4

REPORT INFORMATION
  Report Type: 
  Country: None (occurrence: None)
  Receive Date: 20051108
  Receipt Date: 20051027
  Transmission Date: 20060501
  Serious: Yes (Death)
  Sender: FDA-Public Use
  Company Number: US-JNJFOC-20050704985

PATIENT
  Sex: Male
  Weight: 95.26 kg

DRUGS (8)
  1. INFLIXIMAB [Suspect]
     Indication: RHEUMATOID ARTHRITIS
     Route: 042
  2. METHOTREXATE [Concomitant]
  3. PREDNISONE [Concomitant]
     Dosage: 5-10 MG DAILY
  4. SALSALATE [Concomitant]
  5. HYDROCODONE [Concomitant]
     Dosage: 5/500 1-2 TABS AS NEEDED
  6. ASPIRIN [Concomitant]
  7. TYLENOL (CAPLET) [Concomitant]
  8. ADALAT [Concomitant]

REACTIONS (1)
  - LUNG NEOPLASM MALIGNANT [None]
